FAERS Safety Report 7395868-3 (Version None)
Quarter: 2011Q2

REPORT INFORMATION
  Report Type: 
  Country: None (occurrence: None)
  Receive Date: 20110405
  Receipt Date: 20110404
  Transmission Date: 20111010
  Serious: Yes (Hospitalization)
  Sender: FDA-Public Use
  Company Number: AU-BRISTOL-MYERS SQUIBB COMPANY-15217060

PATIENT
  Age: 50 Year
  Sex: Female
  Weight: 53 kg

DRUGS (4)
  1. THYROXINE [Concomitant]
     Indication: HYPOTHYROIDISM
     Dates: start: 20100615
  2. BLINDED: BRIVANIB ALANINATE [Suspect]
     Indication: COLORECTAL CANCER METASTATIC
     Route: 048
     Dates: start: 20100617
  3. CETUXIMAB [Suspect]
     Indication: COLORECTAL CANCER METASTATIC
     Dosage: 400MG IV WEEKLY 24JUN2010
     Route: 042
     Dates: start: 20100617
  4. BLINDED: PLACEBO [Suspect]
     Indication: COLORECTAL CANCER METASTATIC
     Route: 048
     Dates: start: 20100617

REACTIONS (3)
  - BLOOD BILIRUBIN INCREASED [None]
  - RASH [None]
  - FEBRILE NEUTROPENIA [None]
